FAERS Safety Report 5342345-7 (Version None)
Quarter: 2007Q2

REPORT INFORMATION
  Report Type: 
  Country: None (occurrence: None)
  Receive Date: 20070601
  Receipt Date: 20070529
  Transmission Date: 20071010
  Serious: Yes (Hospitalization)
  Sender: FDA-Public Use
  Company Number: US-ASTRAZENECA-2007UW13072

PATIENT
  Age: 83 Year
  Sex: Female
  Weight: 64.4 kg

DRUGS (1)
  1. SEROQUEL [Suspect]
     Indication: DEMENTIA ALZHEIMER'S TYPE
     Route: 048
     Dates: start: 20050101

REACTIONS (6)
  - ABDOMINAL DISTENSION [None]
  - ARTHROPATHY [None]
  - LIMB OPERATION [None]
  - OEDEMA PERIPHERAL [None]
  - PNEUMONIA [None]
  - SOMNOLENCE [None]
